FAERS Safety Report 12241827 (Version 1)
Quarter: 2016Q2

REPORT INFORMATION
  Report Type: Spontaneous
  Country: CN (occurrence: CN)
  Receive Date: 20160406
  Receipt Date: 20160406
  Transmission Date: 20160815
  Serious: Yes (Other)
  Sender: FDA-Public Use
  Company Number: CN-PFIZER INC-2016187103

PATIENT
  Age: 43 Year
  Sex: Female

DRUGS (1)
  1. CELEBREX [Suspect]
     Active Substance: CELECOXIB
     Indication: LIGAMENT SPRAIN
     Dosage: 0.2 G, 2X/DAY
     Route: 048
     Dates: start: 20160327, end: 20160329

REACTIONS (3)
  - Eye swelling [Recovering/Resolving]
  - Swelling face [Recovering/Resolving]
  - Vision blurred [Recovering/Resolving]

NARRATIVE: CASE EVENT DATE: 20160327
